FAERS Safety Report 8008638-X (Version None)
Quarter: 2011Q4

REPORT INFORMATION
  Report Type: 
  Country: None (occurrence: None)
  Receive Date: 20111227
  Receipt Date: 20111213
  Transmission Date: 20120403
  Serious: Yes (Other)
  Sender: FDA-Public Use
  Company Number: JP-ROCHE-1024185

PATIENT
  Sex: Male

DRUGS (3)
  1. LEVOFLOXACIN [Concomitant]
  2. RANIBIZUMAB [Suspect]
     Indication: AGE-RELATED MACULAR DEGENERATION
     Route: 050
     Dates: start: 20090630
  3. RANIBIZUMAB [Suspect]
     Dates: start: 20090807

REACTIONS (1)
  - VITREOUS HAEMORRHAGE [None]
